FAERS Safety Report 6288801-9 (Version None)
Quarter: 2009Q3

REPORT INFORMATION
  Report Type: 
  Country: None (occurrence: None)
  Receive Date: 20090729
  Receipt Date: 20090717
  Transmission Date: 20100115
  Serious: Yes (Other)
  Sender: FDA-Public Use
  Company Number: SG-PFIZER INC-2009243406

PATIENT
  Age: 63 Year

DRUGS (1)
  1. MINIDIAB [Suspect]

REACTIONS (1)
  - BLOOD GLUCOSE INCREASED [None]
